FAERS Safety Report 4534807-7 (Version None)
Quarter: 2004Q4

REPORT INFORMATION
  Report Type: 
  Country: None (occurrence: None)
  Receive Date: 20041222
  Receipt Date: 20040319
  Transmission Date: 20050328
  Serious: No
  Sender: FDA-Public Use
  Company Number: US-BRISTOL-MYERS SQUIBB COMPANY-12538880

PATIENT
  Age: 64 Year
  Sex: Female
  Weight: 94 kg

DRUGS (3)
  1. PRAVACHOL [Suspect]
     Indication: BLOOD CHOLESTEROL INCREASED
     Route: 048
     Dates: start: 20020307, end: 20040221
  2. LOTREL [Concomitant]
  3. PLAVIX [Concomitant]

REACTIONS (2)
  - DYSPNOEA [None]
  - MUSCULAR WEAKNESS [None]
